FAERS Safety Report 6176437-X (Version None)
Quarter: 2009Q2

REPORT INFORMATION
  Report Type: 
  Country: None (occurrence: None)
  Receive Date: 20090501
  Receipt Date: 20080906
  Transmission Date: 20091009
  Serious: Yes (Other)
  Sender: FDA-Public Use
  Company Number: US-ALEXION-A200800214

PATIENT

DRUGS (6)
  1. SOLIRIS [Suspect]
     Indication: THROMBOTIC THROMBOCYTOPENIC PURPURA
     Dates: start: 20080827, end: 20080827
  2. SOLIRIS [Suspect]
     Indication: HAEMOLYTIC URAEMIC SYNDROME
     Dates: start: 20080905, end: 20080906
  3. PLASMA [Concomitant]
     Dosage: UNK, UNK
  4. MENACTRA [Concomitant]
     Indication: IMMUNISATION
     Dosage: .5 ML, UNK
     Dates: start: 20080827, end: 20080827
  5. PENICILLIN /00000901/ [Concomitant]
     Indication: PROPHYLAXIS
     Dosage: UNK, QID
     Route: 042
  6. ANTIHYPERTENSIVES [Concomitant]
     Indication: HYPERTENSION

REACTIONS (1)
  - VOMITING [None]
